FAERS Safety Report 16999077 (Version 1)
Quarter: 2019Q4

REPORT INFORMATION
  Report Type: Report from Study
  Country: GB (occurrence: GB)
  Receive Date: 20191106
  Receipt Date: 20191106
  Transmission Date: 20200122
  Serious: Yes (Other)
  Sender: FDA-Public Use
  Company Number: PHHY2019GB205194

PATIENT
  Sex: Male

DRUGS (1)
  1. HYRIMOZ [Suspect]
     Active Substance: ADALIMUMAB-ADAZ
     Indication: COLITIS ULCERATIVE
     Dosage: 0.8 ML, Q2W (PRE-FILLED PEN)
     Route: 065
     Dates: start: 20190815

REACTIONS (5)
  - Haematochezia [Unknown]
  - Headache [Unknown]
  - Nausea [Unknown]
  - Fatigue [Recovered/Resolved]
  - Nausea [Recovered/Resolved]
